FAERS Safety Report 23779295 (Version 1)
Quarter: 2024Q2

REPORT INFORMATION
  Report Type: Spontaneous
  Country: US (occurrence: US)
  Receive Date: 20240424
  Receipt Date: 20240424
  Transmission Date: 20240716
  Serious: No
  Sender: FDA-Public Use
  Company Number: US-Blueprint Medicines Corporation-3232

PATIENT
  Age: 69 Year
  Sex: Female

DRUGS (1)
  1. AYVAKIT [Suspect]
     Active Substance: AVAPRITINIB
     Indication: Neoplasm malignant
     Route: 048
     Dates: start: 20230811

REACTIONS (3)
  - Adverse drug reaction [Unknown]
  - Intentional dose omission [Unknown]
  - Off label use [Unknown]

NARRATIVE: CASE EVENT DATE: 20230811
